FAERS Safety Report 6610350-6 (Version None)
Quarter: 2010Q1

REPORT INFORMATION
  Report Type: 
  Country: None (occurrence: None)
  Receive Date: 20100302
  Receipt Date: 20100216
  Transmission Date: 20100710
  Serious: Yes (Hospitalization)
  Sender: FDA-Public Use
  Company Number: US-ROCHE-684242

PATIENT
  Sex: Male
  Weight: 97.7 kg

DRUGS (7)
  1. ENFUVIRTIDE [Suspect]
     Indication: HIV INFECTION
     Dosage: LAST DOSE: 02 FEB 2010
     Route: 058
     Dates: start: 20090319
  2. DARUNAVIR [Suspect]
     Indication: HIV INFECTION
     Dosage: LAST DOSE ON: 01 FEB 2010
     Route: 048
     Dates: start: 20090319
  3. RALTEGRAVIR [Suspect]
     Indication: HIV INFECTION
     Dosage: LAST DOSE: 01 FEB 2010.
     Route: 048
     Dates: start: 20090319
  4. RITONAVIR [Suspect]
     Indication: HIV INFECTION
     Dosage: LAST DOSE ON: 02 FEB 2010.
     Route: 048
     Dates: start: 20090319
  5. TRICOR [Concomitant]
     Dosage: FREQUENCY : EVERY DAY,  APPROXIMATE DURATION OF USE: 23 MONTH
     Route: 048
     Dates: end: 20100201
  6. CENTRUM [Concomitant]
     Indication: VITAMIN SUPPLEMENTATION
     Dosage: FREQUENCY : EVERY DAY,  APPROXIMATE DURATION OF USE: 7 YEARS
     Route: 048
     Dates: end: 20100201
  7. PREPACOL [Concomitant]
     Dosage: FREQUENCY: QD, DRUG NEM REPORTED: PREVACOL. APPROXIMATE DURATION OF USE: 18 MONTH.
     Route: 048
     Dates: end: 20100201

REACTIONS (1)
  - HOSPITALISATION [None]
